FAERS Safety Report 4977439-9 (Version None)
Quarter: 2006Q2

REPORT INFORMATION
  Report Type: 
  Country: None (occurrence: None)
  Receive Date: 20060413
  Receipt Date: 20060330
  Transmission Date: 20061013
  Serious: Yes (Hospitalization)
  Sender: FDA-Public Use
  Company Number: THYR-10300

PATIENT
  Age: 63 Year
  Sex: Female
  Weight: 63 kg

DRUGS (2)
  1. THYROGEN [Suspect]
     Indication: DIAGNOSTIC PROCEDURE
     Dosage: 0.9 MG ONCE IM
     Route: 030
     Dates: start: 20060329, end: 20060329
  2. L-THYROXIN [Concomitant]

REACTIONS (3)
  - DERMATITIS ALLERGIC [None]
  - PRURITUS [None]
  - RASH [None]
